FAERS Safety Report 17082329 (Version 1)
Quarter: 2019Q4

REPORT INFORMATION
  Report Type: Spontaneous
  Country: US (occurrence: US)
  Receive Date: 20191127
  Receipt Date: 20191127
  Transmission Date: 20200122
  Serious: Yes (Hospitalization)
  Sender: FDA-Public Use
  Company Number: US-MYLANLABS-2019M1116943

PATIENT
  Age: 48 Year
  Sex: Female

DRUGS (4)
  1. METHIMAZOLE. [Suspect]
     Active Substance: METHIMAZOLE
     Indication: THYROTOXIC CRISIS
     Dosage: 60 MILLIGRAM
     Route: 065
  2. AMIODARONE [Suspect]
     Active Substance: AMIODARONE
     Indication: THYROTOXIC CRISIS
     Route: 042
  3. HYDROCORTISONE. [Suspect]
     Active Substance: HYDROCORTISONE
     Indication: THYROTOXIC CRISIS
     Dosage: THREE TIMES A DAY
     Route: 042
  4. LUGOLS IODINE [Suspect]
     Active Substance: IODINE\POTASSIUM IODIDE
     Indication: THYROTOXIC CRISIS
     Dosage: 10 DROPS THREE TIMES A DAY
     Route: 065

REACTIONS (1)
  - Drug ineffective [Unknown]
